FAERS Safety Report 7541340-7 (Version None)
Quarter: 2011Q2

REPORT INFORMATION
  Report Type: 
  Country: None (occurrence: None)
  Receive Date: 20110612
  Receipt Date: 20110531
  Transmission Date: 20111010
  Serious: Yes (Other)
  Sender: FDA-Public Use
  Company Number: GR-ELI_LILLY_AND_COMPANY-GR201106001531

PATIENT
  Age: 35 Year
  Sex: Male
  Weight: 70 kg

DRUGS (3)
  1. CYMBALTA [Suspect]
     Indication: NEURALGIA
     Dosage: 120 MG, QD
     Route: 048
     Dates: start: 20100901
  2. CYMBALTA [Suspect]
     Dosage: UNK, UNKNOWN
     Route: 048
  3. CYMBALTA [Suspect]
     Dosage: 30 MG, QD
     Route: 048

REACTIONS (2)
  - CARDIOMEGALY [None]
  - ARRHYTHMIA [None]
